FAERS Safety Report 16076742 (Version 1)
Quarter: 2019Q2

REPORT INFORMATION
  Report Type: Spontaneous
  Country: US (occurrence: US)
  Receive Date: 20190314
  Receipt Date: 20190314
  Transmission Date: 20190711
  Serious: Yes (Other)
  Sender: FDA-Public Use
  Company Number: None

PATIENT
  Sex: Female
  Weight: 54 kg

DRUGS (3)
  1. ARIMIDEX [Suspect]
     Active Substance: ANASTROZOLE
     Indication: OESTROGEN RECEPTOR POSITIVE BREAST CANCER
     Route: 048
  2. CALCIUM-MAGNESIUM [Concomitant]
     Active Substance: CALCIUM\MAGNESIUM
  3. TAMOXIFEN [Concomitant]
     Active Substance: TAMOXIFEN

REACTIONS (2)
  - Hyperacusis [None]
  - Insomnia [None]
